FAERS Safety Report 12310908 (Version 2)
Quarter: 2016Q2

REPORT INFORMATION
  Report Type: Not Available
  Country: FR (occurrence: FR)
  Receive Date: 20160427
  Receipt Date: 20160506
  Transmission Date: 20160815
  Serious: Yes (Hospitalization)
  Sender: FDA-Public Use
  Company Number: FR-MUNDIPHARMA DS AND PHARMACOVIGILANCE-GBR-2016-0035602

PATIENT
  Age: 62 Year
  Sex: Male
  Weight: 60 kg

DRUGS (7)
  1. ALIMTA [Suspect]
     Active Substance: PEMETREXED DISODIUM
     Indication: LUNG ADENOCARCINOMA METASTATIC
     Dosage: 900 MG ONCE EVERY 3 WEEKS
     Route: 042
     Dates: start: 20150430, end: 20160308
  2. VITAMIN B12 [Concomitant]
     Active Substance: CYANOCOBALAMIN
     Indication: VITAMIN SUPPLEMENTATION
     Dosage: 1 MG, DAILY
     Route: 065
     Dates: start: 20150430
  3. LYRICA [Concomitant]
     Active Substance: PREGABALIN
     Dosage: 50 MG, BID
     Route: 048
     Dates: start: 201510, end: 20160304
  4. SPECIAFOLDINE [Concomitant]
     Active Substance: FOLIC ACID
     Indication: ANAEMIA PROPHYLAXIS
     Dosage: 0.4 MG, DAILY
     Route: 048
     Dates: start: 20150430, end: 20160325
  5. LYRICA [Concomitant]
     Active Substance: PREGABALIN
     Dosage: 50 MG, NOCTE
     Route: 048
     Dates: start: 20151020, end: 201510
  6. OXYCONTIN [Suspect]
     Active Substance: OXYCODONE HYDROCHLORIDE
     Indication: PAIN
     Dosage: 5 MG, BID
     Route: 048
     Dates: start: 20160304, end: 20160322
  7. PREDNISONE. [Concomitant]
     Active Substance: PREDNISONE
     Indication: RHEUMATOID ARTHRITIS
     Dosage: MONCE EVERY THREE WEEKS (AT THE MOMENT OF THE CYCLE)
     Route: 048
     Dates: start: 20150430, end: 20160308

REACTIONS (4)
  - Erythema [Recovering/Resolving]
  - Neuropathy peripheral [Recovering/Resolving]
  - Skin hyperpigmentation [Recovering/Resolving]
  - Oedema peripheral [Recovering/Resolving]

NARRATIVE: CASE EVENT DATE: 20160304
